FAERS Safety Report 7926873 (Version 10)
Quarter: 2014Q4

REPORT INFORMATION
  Report Type: Spontaneous
  Country: US (occurrence: US)
  Receive Date: 20110502
  Receipt Date: 20141009
  Transmission Date: 20150529
  Serious: Yes (Life-Threatening, Other)
  Sender: FDA-Public Use
  Company Number: US-ASTRAZENECA-2011SE00412

PATIENT
  Age: 75 Year
  Sex: Female
  Weight: 90.7 kg

DRUGS (10)
  1. PULMICORT FLEXHALER [Suspect]
     Active Substance: BUDESONIDE
     Indication: DYSPNOEA
     Dosage: 2 PUFFS TWO TIMES A DAY
     Route: 055
  2. NEXIUM [Suspect]
     Active Substance: ESOMEPRAZOLE MAGNESIUM
     Indication: ABDOMINAL DISCOMFORT
     Route: 048
  3. ZOLOFT [Concomitant]
     Active Substance: SERTRALINE HYDROCHLORIDE
  4. NEXIUM [Suspect]
     Active Substance: ESOMEPRAZOLE MAGNESIUM
     Indication: ABDOMINAL DISCOMFORT
     Route: 048
  5. NEXIUM [Suspect]
     Active Substance: ESOMEPRAZOLE MAGNESIUM
     Indication: ABDOMINAL DISCOMFORT
     Dosage: DAILY
     Route: 048
  6. TOPROL XL [Suspect]
     Active Substance: METOPROLOL SUCCINATE
     Indication: ABDOMINAL DISCOMFORT
     Dosage: DAILY
     Route: 048
  7. NORTRIPTYLINE HCL [Suspect]
     Active Substance: NORTRIPTYLINE HYDROCHLORIDE
     Route: 065
  8. COUMADIN [Concomitant]
     Active Substance: WARFARIN SODIUM
  9. TOPROL XL [Suspect]
     Active Substance: METOPROLOL SUCCINATE
     Indication: DYSPNOEA
     Dosage: DAILY
     Route: 048
  10. SYMBICORT [Suspect]
     Active Substance: BUDESONIDE\FORMOTEROL FUMARATE DIHYDRATE
     Indication: ASTHMA
     Dosage: 2 PUFFS, AS REQUIRED
     Route: 055
     Dates: start: 2013

REACTIONS (29)
  - Malaise [Unknown]
  - Discomfort [Unknown]
  - Dyspnoea [Unknown]
  - Neoplasm malignant [Unknown]
  - Bladder cancer [Unknown]
  - Pain [Unknown]
  - Head injury [Unknown]
  - Retching [Unknown]
  - Headache [Not Recovered/Not Resolved]
  - Off label use [Unknown]
  - Hypertension [Unknown]
  - Glaucoma [Unknown]
  - Orbital cyst [Unknown]
  - Deafness [Unknown]
  - Drug dose omission [Unknown]
  - Lung disorder [Unknown]
  - Ligament sprain [Unknown]
  - Ulcer [Unknown]
  - Diabetes mellitus [Unknown]
  - Vomiting [Unknown]
  - Coma [Unknown]
  - Dizziness [Unknown]
  - Muscle strain [Unknown]
  - Body height decreased [Unknown]
  - Hypoaesthesia [Unknown]
  - Diarrhoea [Unknown]
  - Fall [Unknown]
  - Movement disorder [Unknown]
  - Mobility decreased [Unknown]

NARRATIVE: CASE EVENT DATE: 2013
